FAERS Safety Report 8206452-3 (Version None)
Quarter: 2012Q1

REPORT INFORMATION
  Report Type: 
  Country: None (occurrence: None)
  Receive Date: 20120313
  Receipt Date: 20120302
  Transmission Date: 20120608
  Serious: Yes (Hospitalization, Other)
  Sender: FDA-Public Use
  Company Number: CA-ROCHE-GNE298093

PATIENT
  Sex: Male
  Weight: 73.578 kg

DRUGS (19)
  1. NITRO-DUR [Concomitant]
  2. DIGOXIN [Concomitant]
  3. OMALIZUMAB [Suspect]
     Indication: ASTHMA
     Dosage: 225 MG, Q2W
     Route: 058
     Dates: start: 20060406
  4. METFORMIN HCL [Concomitant]
  5. VERAPAMIL [Concomitant]
  6. EZETIMIBE [Concomitant]
  7. PREDNISONE TAB [Concomitant]
  8. OMALIZUMAB [Suspect]
     Dosage: UNK
     Route: 058
     Dates: start: 20110429, end: 20111031
  9. LOSEC (CANADA) [Concomitant]
  10. LASIX [Concomitant]
  11. CRESTOR [Concomitant]
  12. FOSAVANCE [Concomitant]
  13. COUMADIN [Concomitant]
  14. OMALIZUMAB [Suspect]
     Dosage: 225 MG, Q2W
     Route: 058
     Dates: start: 20100204
  15. MICARDIS [Concomitant]
  16. SINGULAIR [Concomitant]
  17. ADVAIR DISKUS 100/50 [Concomitant]
  18. SPIRIVA [Concomitant]
  19. PRIMIDONE [Concomitant]

REACTIONS (13)
  - ATRIAL FIBRILLATION [None]
  - UPPER GASTROINTESTINAL HAEMORRHAGE [None]
  - ASTHMA [None]
  - CARDIAC DISORDER [None]
  - SEPSIS [None]
  - PHARYNGITIS [None]
  - MYOCARDIAL INFARCTION [None]
  - COUGH [None]
  - DYSPNOEA [None]
  - ANGINA PECTORIS [None]
  - PNEUMONIA [None]
  - WHEEZING [None]
  - SINUSITIS [None]
